FAERS Safety Report 8851170 (Version 1)
Quarter: 2012Q4

REPORT INFORMATION
  Report Type: 
  Country: US (occurrence: US)
  Receive Date: 20121019
  Receipt Date: 20121019
  Transmission Date: 20130627
  Serious: No
  Sender: FDA-Public Use
  Company Number: US-BRISTOL-MYERS SQUIBB COMPANY-16784043

PATIENT
  Age: 84 Year
  Sex: Male
  Weight: 78 kg

DRUGS (1)
  1. YERVOY [Suspect]
     Indication: METASTATIC MALIGNANT MELANOMA
     Dosage: 4 doses

REACTIONS (2)
  - Rash [Recovering/Resolving]
  - Headache [Unknown]
